FAERS Safety Report 25758518 (Version 2)
Quarter: 2025Q3

REPORT INFORMATION
  Report Type: Spontaneous
  Country: IN (occurrence: IN)
  Receive Date: 20250904
  Receipt Date: 20250905
  Transmission Date: 20251020
  Serious: Yes (Other)
  Sender: ZYDUS PHARM
  Company Number: IN-ZYDUS-IN-ZYDUS-128034

PATIENT

DRUGS (3)
  1. PREGABALIN [Suspect]
     Active Substance: PREGABALIN
     Indication: Somnolence
     Route: 048
  2. PREGABALIN [Suspect]
     Active Substance: PREGABALIN
     Route: 048
  3. PREGABALIN [Suspect]
     Active Substance: PREGABALIN
     Route: 065

REACTIONS (12)
  - Withdrawal syndrome [Unknown]
  - Drug dependence [Unknown]
  - Irritability [Unknown]
  - Restlessness [Unknown]
  - Feeling jittery [Unknown]
  - Insomnia [Unknown]
  - Headache [Unknown]
  - Vomiting [Unknown]
  - Paraesthesia [Unknown]
  - Pain in extremity [Unknown]
  - Intentional overdose [Unknown]
  - Drug abuse [Unknown]
